FAERS Safety Report 11997558 (Version 3)
Quarter: 2019Q3

REPORT INFORMATION
  Report Type: Spontaneous
  Country: US (occurrence: US)
  Receive Date: 20160203
  Receipt Date: 20190925
  Transmission Date: 20191004
  Serious: Yes (Other)
  Sender: FDA-Public Use
  Company Number: US-ELI_LILLY_AND_COMPANY-US201602000290

PATIENT
  Sex: Male

DRUGS (2)
  1. CYMBALTA [Suspect]
     Active Substance: DULOXETINE HYDROCHLORIDE
     Indication: DEPRESSION
  2. CYMBALTA [Suspect]
     Active Substance: DULOXETINE HYDROCHLORIDE
     Indication: PAIN
     Dosage: UNK, UNKNOWN
     Route: 065

REACTIONS (29)
  - Dysphoria [Unknown]
  - Agitation [Unknown]
  - Paraesthesia [Unknown]
  - Dizziness [Unknown]
  - Type 2 diabetes mellitus [Unknown]
  - Fibromyalgia [Unknown]
  - Peripheral swelling [Unknown]
  - Withdrawal syndrome [Unknown]
  - Nausea [Unknown]
  - Mood swings [Unknown]
  - Tremor [Unknown]
  - Migraine [Unknown]
  - Chronic fatigue syndrome [Recovering/Resolving]
  - Suicidal ideation [Unknown]
  - Myalgia [Recovered/Resolved]
  - Confusional state [Unknown]
  - Irritability [Unknown]
  - Headache [Unknown]
  - Insomnia [Unknown]
  - Weight increased [Unknown]
  - Sensory disturbance [Unknown]
  - Vertigo [Unknown]
  - Lethargy [Unknown]
  - Fine motor skill dysfunction [Recovering/Resolving]
  - Fatigue [Unknown]
  - Hyperhidrosis [Unknown]
  - Anxiety [Unknown]
  - Tinnitus [Unknown]
  - Back pain [Unknown]
